FAERS Safety Report 6473919-8 (Version None)
Quarter: 2009Q4

REPORT INFORMATION
  Report Type: 
  Country: None (occurrence: None)
  Receive Date: 20091204
  Receipt Date: 20091001
  Transmission Date: 20100525
  Serious: No
  Sender: FDA-Public Use
  Company Number: A0809961A

PATIENT
  Age: 58 Year
  Sex: Female

DRUGS (6)
  1. LAMICTAL [Suspect]
     Indication: DEPRESSION
     Dosage: 25MG PER DAY
     Route: 048
     Dates: start: 20090101, end: 20090101
  2. LAMICTAL [Suspect]
     Dosage: 200MG PER DAY
     Route: 048
     Dates: start: 20090101, end: 20090101
  3. LAMICTAL [Suspect]
     Dosage: 200MG PER DAY
     Route: 048
     Dates: start: 20090901, end: 20090901
  4. PROVIGIL [Concomitant]
  5. THYROID MEDICATION [Concomitant]
  6. WELLBUTRIN [Concomitant]

REACTIONS (4)
  - DEPRESSIVE SYMPTOM [None]
  - PARAESTHESIA [None]
  - PRURITUS [None]
  - SCRATCH [None]
